FAERS Safety Report 26006959 (Version 1)
Quarter: 2025Q4

REPORT INFORMATION
  Report Type: Report from Study
  Country: EU (occurrence: EU)
  Receive Date: 20251106
  Receipt Date: 20251106
  Transmission Date: 20260118
  Serious: Yes (Other)
  Sender: TEVA
  Company Number: EU-TEVA-VS-3387845

PATIENT
  Age: 65 Year
  Sex: Female

DRUGS (6)
  1. TERIPARATIDE [Suspect]
     Active Substance: TERIPARATIDE
     Indication: Osteoporosis
     Dosage: (TETRIDAR 20 MCG/80 MCL)
     Route: 065
     Dates: start: 20240901, end: 20251020
  2. CLORAZEPATE DIPOTASSIUM [Concomitant]
     Active Substance: CLORAZEPATE DIPOTASSIUM
     Indication: Anxiety
     Dosage: TRANXILIUM 5, DOSE: ONE IN THE MORNING; START DATE: SOME TIME AGO; END DATE: CONTINUES
  3. SERTRALINE [Concomitant]
     Active Substance: SERTRALINE HYDROCHLORIDE
     Indication: Anxiety
     Dosage: SERTRALINA 20, DOSE: ONE IN THE MORNING; START DATE: SOME TIME AGO; END DATE: CONTINUES.
  4. PANTOPRAZOLE [Concomitant]
     Active Substance: PANTOPRAZOLE
     Indication: Gastrointestinal disorder
     Dosage: DOSE: ONE AT NIGHT; START DATE: SOME TIME AGO
     Dates: end: 202410
  5. FAMOTIDINE [Concomitant]
     Active Substance: FAMOTIDINE
     Indication: Hiatus hernia
     Dosage: END DATE: CONTINUES
     Dates: start: 202410
  6. CALCIFEDIOL [Concomitant]
     Active Substance: CALCIFEDIOL
     Indication: Osteoporosis
     Dosage: DOSE; ONE FORTNIGHTLY; START DATE: SOME TIME AGO; END DATE: CONTINUES

REACTIONS (2)
  - Nephrolithiasis [Recovered/Resolved]
  - Arthralgia [Recovered/Resolved]

NARRATIVE: CASE EVENT DATE: 20250101
